FAERS Safety Report 8721521 (Version 3)
Quarter: 2013Q2

REPORT INFORMATION
  Report Type: Report from Study
  Country: BR (occurrence: BR)
  Receive Date: 20120813
  Receipt Date: 20130611
  Transmission Date: 20140414
  Serious: Yes (Hospitalization)
  Sender: FDA-Public Use
  Company Number: BR-ROCHE-1100963

PATIENT
  Sex: Female
  Weight: 48 kg

DRUGS (3)
  1. RITUXIMAB [Suspect]
     Indication: RHEUMATOID ARTHRITIS
     Route: 042
     Dates: start: 20090123
  2. RITUXIMAB [Suspect]
     Route: 042
     Dates: start: 20090201
  3. DEFLANIL [Concomitant]
     Route: 042

REACTIONS (1)
  - Arthropathy [Recovered/Resolved]
